FAERS Safety Report 18659026 (Version 1)
Quarter: 2020Q4

REPORT INFORMATION
  Report Type: Spontaneous
  Country: US (occurrence: US)
  Receive Date: 20201223
  Receipt Date: 20201223
  Transmission Date: 20210114
  Serious: Yes (Other)
  Sender: FDA-Public Use
  Company Number: US-PURDUE-USA-2020-0182080

PATIENT
  Sex: Male
  Weight: 65 kg

DRUGS (4)
  1. HYDROCODONE BITARTRATE AND ACETAMINOPHEN [Suspect]
     Active Substance: ACETAMINOPHEN\HYDROCODONE BITARTRATE
     Indication: PRODUCT USED FOR UNKNOWN INDICATION
     Dosage: UNK
     Route: 048
  2. NORCO [Suspect]
     Active Substance: ACETAMINOPHEN\HYDROCODONE BITARTRATE
     Indication: PRODUCT USED FOR UNKNOWN INDICATION
     Dosage: 10-325 MG, Q4- 6H
     Route: 048
  3. OXYCONTIN [Suspect]
     Active Substance: OXYCODONE HYDROCHLORIDE
     Indication: PAIN
     Dosage: 10 MG, UNK
     Route: 048
  4. OXYCONTIN [Suspect]
     Active Substance: OXYCODONE HYDROCHLORIDE
     Dosage: 30 MG, Q12H
     Route: 048

REACTIONS (12)
  - Stress [Unknown]
  - Depression [Unknown]
  - Dry mouth [Unknown]
  - Drug dependence [Unknown]
  - Sleep apnoea syndrome [Unknown]
  - Emotional distress [Unknown]
  - Amnesia [Unknown]
  - Tooth loss [Unknown]
  - Mood swings [Unknown]
  - Pain [Unknown]
  - Pollakiuria [Unknown]
  - Anxiety [Unknown]
